FAERS Safety Report 18221722 (Version 1)
Quarter: 2020Q3

REPORT INFORMATION
  Report Type: Spontaneous
  Country: US (occurrence: US)
  Receive Date: 20200901
  Receipt Date: 20200901
  Transmission Date: 20201103
  Serious: Yes (Hospitalization)
  Sender: FDA-Public Use
  Company Number: None

PATIENT
  Age: 67 Year
  Sex: Female

DRUGS (16)
  1. HUMIRA [Suspect]
     Active Substance: ADALIMUMAB
     Indication: RHEUMATOID ARTHRITIS
     Dosage: ?          OTHER FREQUENCY:EVERY 14 DAYS;?
     Route: 058
     Dates: start: 20200421
  2. DULOXETINE CAP 60MG [Concomitant]
     Dates: start: 20200414
  3. LEVOTHYROXIN TAB 100MCG [Concomitant]
     Dates: start: 20200414
  4. MULTIPLE VIT TAB [Concomitant]
     Dates: start: 20200414
  5. WARFARIN TAB 5MG [Concomitant]
     Dates: start: 20200414
  6. VITAMIN D CAP 400 UNIT [Concomitant]
     Dates: start: 20200414
  7. BIOTIN TAB 10MG [Concomitant]
     Dates: start: 20200414
  8. DOCUSATE SOD CAP 100MG [Concomitant]
     Dates: start: 20200414
  9. METHOTREXATE TAB 2.5MG [Concomitant]
     Active Substance: METHOTREXATE
     Dates: start: 20200414
  10. ROSUVASTATIN TAB 40MG [Concomitant]
     Active Substance: ROSUVASTATIN
     Dates: start: 20200414
  11. PREDNISONE TAB 5 MG [Concomitant]
     Dates: start: 20200414
  12. FOLIC ACID TAB 1 MG [Concomitant]
     Dates: start: 20200414
  13. VALACYCLOVIR TAB 500MG [Concomitant]
     Dates: start: 20200414
  14. OMEPRAZOLE TAB 20MG [Concomitant]
     Dates: start: 20200414
  15. METOPROL TAR TAB 50MG [Concomitant]
     Dates: start: 20200414
  16. ASPIRIN LOW TAB 81MG EC [Concomitant]
     Dates: start: 20200414

REACTIONS (2)
  - Device malfunction [None]
  - Seizure [None]

NARRATIVE: CASE EVENT DATE: 20200826
